FAERS Safety Report 9394668 (Version 1)
Quarter: 2013Q3

REPORT INFORMATION
  Report Type: Spontaneous
  Country: AU (occurrence: AU)
  Receive Date: 20130711
  Receipt Date: 20130711
  Transmission Date: 20140515
  Serious: Yes (Life-Threatening)
  Sender: FDA-Public Use
  Company Number: AU-009507513-1307AUS004804

PATIENT
  Age: 52 Year
  Sex: Male
  Weight: 60 kg

DRUGS (3)
  1. RIBAVIRIN [Suspect]
     Indication: LIVER DISORDER
     Dosage: 800 MG DAILY
     Dates: start: 20130412, end: 20130614
  2. TELAPREVIR [Suspect]
     Indication: LIVER DISORDER
     Dosage: 2250 MILLIGRAMS, DAILY
     Route: 048
     Dates: start: 20130412, end: 20130614
  3. PEGASYS [Suspect]
     Indication: LIVER DISORDER
     Dosage: 180 MICROGRAM, QW
     Route: 058
     Dates: start: 20130412, end: 20130614

REACTIONS (1)
  - Neutropenia [Not Recovered/Not Resolved]
